FAERS Safety Report 12508033 (Version 1)
Quarter: 2016Q2

REPORT INFORMATION
  Report Type: Spontaneous
  Country: US (occurrence: None)
  Receive Date: 20160628
  Receipt Date: 20160628
  Transmission Date: 20160815
  Serious: No
  Sender: FDA-Public Use
  Company Number: None

PATIENT
  Age: 94 Year
  Sex: Male
  Weight: 71.22 kg

DRUGS (2)
  1. RISPERIDONE ORAL SOL, 1MG/ML [Suspect]
     Active Substance: RISPERIDONE
     Indication: PSYCHOTIC DISORDER
     Route: 048
     Dates: start: 20160324, end: 20160622
  2. RISPERIDONE ORAL SOL, 1MG/ML [Suspect]
     Active Substance: RISPERIDONE
     Indication: VASCULAR DEMENTIA
     Route: 048
     Dates: start: 20160324, end: 20160622

REACTIONS (2)
  - Syringe issue [None]
  - Incorrect dose administered [None]
